FAERS Safety Report 8026807-X (Version None)
Quarter: 2011Q4

REPORT INFORMATION
  Report Type: 
  Country: None (occurrence: None)
  Receive Date: 20111130
  Receipt Date: 20110503
  Transmission Date: 20120403
  Serious: Yes (Other)
  Sender: FDA-Public Use
  Company Number: US201103003607

PATIENT
  Age: 66 Year
  Sex: Male
  Weight: 89.8 kg

DRUGS (7)
  1. METFORMIN HCL [Concomitant]
  2. ASPIRIN [Concomitant]
  3. BYETTA [Suspect]
     Indication: TYPE 2 DIABETES MELLITUS
     Dosage: 5 UG, 2/D, SUBCUTANEOUS, 10 UG, 2/D, SUBCUTANEOUS
     Route: 058
     Dates: start: 20101201, end: 20110101
  4. BYETTA [Suspect]
     Indication: TYPE 2 DIABETES MELLITUS
     Dosage: 5 UG, 2/D, SUBCUTANEOUS, 10 UG, 2/D, SUBCUTANEOUS
     Route: 058
     Dates: start: 20110106, end: 20110307
  5. LISINOPRIL + HYDROCHLOROTHIAZIDE(HYDROCHLOROTHIAZIDE LISINOPRIL ) [Concomitant]
  6. SIMVASTATIN [Concomitant]
  7. IBUPROFEN (IBUPROFEN) [Concomitant]

REACTIONS (2)
  - WEIGHT DECREASED [None]
  - PANCREATITIS ACUTE [None]
